FAERS Safety Report 4487820-2 (Version None)
Quarter: 2004Q4

REPORT INFORMATION
  Report Type: 
  Country: None (occurrence: None)
  Receive Date: 20041025
  Receipt Date: 20041015
  Transmission Date: 20050328
  Serious: Yes (Hospitalization)
  Sender: FDA-Public Use
  Company Number: STA-AE-04-MTX-413

PATIENT
  Age: 73 Year
  Sex: Male

DRUGS (6)
  1. METHOTREXATE [Suspect]
     Indication: RHEUMATOID ARTHRITIS
     Dosage: 15 MG 1X PER 1 WK; ORAL
     Route: 048
     Dates: start: 19900101
  2. ENBREL [Suspect]
     Dosage: 25MG 2X PER 1 WK; SC
     Route: 058
     Dates: start: 20021125, end: 20030103
  3. PREDNISONE [Concomitant]
  4. ARICEPT [Concomitant]
  5. SPALT ASS (ASPIRIN) [Concomitant]
  6. PLAVIX [Concomitant]

REACTIONS (2)
  - JAW OPERATION [None]
  - SQUAMOUS CELL CARCINOMA [None]
